FAERS Safety Report 26122942 (Version 1)
Quarter: 2025Q4

REPORT INFORMATION
  Report Type: Spontaneous
  Country: CN (occurrence: CN)
  Receive Date: 20251204
  Receipt Date: 20251204
  Transmission Date: 20260117
  Serious: Yes (Other)
  Sender: PFIZER
  Company Number: CN-PFIZER INC-PV202500140565

PATIENT
  Age: 62 Year
  Sex: Female
  Weight: 54.5 kg

DRUGS (3)
  1. PACLITAXEL [Suspect]
     Active Substance: PACLITAXEL
     Indication: Neoplasm malignant
     Dosage: 230 MG, 1X/DAY
     Route: 041
     Dates: start: 20251106, end: 20251106
  2. PACLITAXEL [Suspect]
     Active Substance: PACLITAXEL
     Dosage: 30 MG, 1X/DAY
     Route: 041
     Dates: start: 20251106, end: 20251106
  3. PARAPLATIN [Suspect]
     Active Substance: CARBOPLATIN
     Indication: Neoplasm malignant
     Dosage: 0.25 G, 2X/DAY
     Route: 041
     Dates: start: 20251106, end: 20251106

REACTIONS (2)
  - Myelosuppression [Recovering/Resolving]
  - Transaminases increased [Recovering/Resolving]

NARRATIVE: CASE EVENT DATE: 20251110
